FAERS Safety Report 7020566-5 (Version None)
Quarter: 2010Q3

REPORT INFORMATION
  Report Type: 
  Country: None (occurrence: None)
  Receive Date: 20100927
  Receipt Date: 20100910
  Transmission Date: 20110219
  Serious: Yes (Disabling)
  Sender: FDA-Public Use
  Company Number: 2010003895

PATIENT
  Age: 56 Year
  Sex: Female

DRUGS (6)
  1. TARCEVA [Suspect]
     Indication: PRODUCT USED FOR UNKNOWN INDICATION
     Dosage: (100 MG, QD), ORAL
     Route: 048
     Dates: start: 20100902
  2. OXYCONTIN [Concomitant]
  3. GENTAMICIN SULFATE 9GENTAMICIN SULFATE) [Concomitant]
  4. MEGACE [Concomitant]
  5. ONICIT [Concomitant]
  6. PANTOP (PANTOPRAZOLE SODIUM) [Concomitant]

REACTIONS (1)
  - DRUG HYPERSENSITIVITY [None]
